FAERS Safety Report 9276090 (Version 1)
Quarter: 2013Q2

REPORT INFORMATION
  Report Type: Spontaneous
  Country: US (occurrence: US)
  Receive Date: 20130507
  Receipt Date: 20130507
  Transmission Date: 20140414
  Serious: Yes (Other)
  Sender: FDA-Public Use
  Company Number: US-ABBOTT-13P-163-1084322-00

PATIENT
  Sex: Male

DRUGS (5)
  1. VICODIN [Suspect]
     Indication: PAIN MANAGEMENT
  2. UNKNOWN DEADLY PAIN KILLERS [Concomitant]
     Indication: PAIN MANAGEMENT
  3. NABUMETONE [Concomitant]
     Indication: PAIN MANAGEMENT
  4. NSAID^S [Concomitant]
     Indication: PAIN MANAGEMENT
  5. TYLENOL WITH CODEINE NO.3 [Concomitant]
     Indication: PAIN MANAGEMENT

REACTIONS (2)
  - Suicide attempt [Unknown]
  - Pain [Not Recovered/Not Resolved]
